FAERS Safety Report 4904605-0 (Version None)
Quarter: 2006Q1

REPORT INFORMATION
  Report Type: 
  Country: None (occurrence: None)
  Receive Date: 20060208
  Receipt Date: 20050920
  Transmission Date: 20060701
  Serious: No
  Sender: FDA-Public Use
  Company Number: US-GLAXOSMITHKLINE-A0575048A

PATIENT
  Age: 50 Year
  Sex: Male

DRUGS (2)
  1. PAXIL [Suspect]
     Indication: DRUG USE FOR UNKNOWN INDICATION
     Dosage: 20MG PER DAY
     Route: 048
     Dates: end: 20050912
  2. BETA BLOCKER [Concomitant]
     Route: 042

REACTIONS (4)
  - AGITATION [None]
  - ANGER [None]
  - DRUG WITHDRAWAL SYNDROME [None]
  - HYPERTENSION [None]
